FAERS Safety Report 15713373 (Version 1)
Quarter: 2018Q4

REPORT INFORMATION
  Report Type: Spontaneous
  Country: US (occurrence: US)
  Receive Date: 20181129
  Receipt Date: 20181129
  Transmission Date: 20190205
  Serious: Yes (Hospitalization)
  Sender: FDA-Public Use
  Company Number: None

PATIENT
  Weight: 85.55 kg

DRUGS (1)
  1. PRAMIPEXOLE. [Suspect]
     Active Substance: PRAMIPEXOLE
     Indication: PARKINSON^S DISEASE
     Route: 048
     Dates: start: 20150101, end: 20180528

REACTIONS (4)
  - Head injury [None]
  - Fall [None]
  - Orthostatic hypotension [None]
  - Syncope [None]

NARRATIVE: CASE EVENT DATE: 20180524
